FAERS Safety Report 8900533 (Version 1)
Quarter: 2012Q4

REPORT INFORMATION
  Report Type: 
  Country: IN (occurrence: IN)
  Receive Date: 20121109
  Receipt Date: 20121109
  Transmission Date: 20130627
  Serious: Yes (Death, Hospitalization)
  Sender: FDA-Public Use
  Company Number: IN-PFIZER INC-2012173014

PATIENT
  Age: 23 Year
  Sex: Male

DRUGS (1)
  1. SUTENT [Suspect]
     Indication: GASTROINTESTINAL STROMAL TUMOR
     Dosage: 37.5 mg, once a day
     Route: 048
     Dates: start: 20120605

REACTIONS (2)
  - Death [Fatal]
  - Abdominal pain upper [Recovering/Resolving]
